FAERS Safety Report 11475685 (Version 2)
Quarter: 2015Q3

REPORT INFORMATION
  Report Type: Spontaneous
  Country: NL (occurrence: NL)
  Receive Date: 20150909
  Receipt Date: 20150918
  Transmission Date: 20151125
  Serious: Yes (Hospitalization)
  Sender: FDA-Public Use
  Company Number: NL-WEST-WARD PHARMACEUTICALS CORP.-NL-H14001-15-01642

PATIENT

DRUGS (1)
  1. CEFTRIAXONE. [Suspect]
     Active Substance: CEFTRIAXONE
     Indication: BACTERIAL SEPSIS
     Route: 042
     Dates: start: 201507, end: 201507

REACTIONS (1)
  - Jarisch-Herxheimer reaction [Recovered/Resolved]

NARRATIVE: CASE EVENT DATE: 2015
